FAERS Safety Report 17821129 (Version 2)
Quarter: 2020Q2

REPORT INFORMATION
  Report Type: Spontaneous
  Country: US (occurrence: US)
  Receive Date: 20200525
  Receipt Date: 20200629
  Transmission Date: 20200714
  Serious: No
  Sender: FDA-Public Use
  Company Number: US-VIIV HEALTHCARE LIMITED-US2020AMR087175

PATIENT
  Age: 49 Year
  Sex: Male
  Weight: 68.03 kg

DRUGS (2)
  1. TRIUMEQ [Suspect]
     Active Substance: ABACAVIR SULFATE\DOLUTEGRAVIR SODIUM\LAMIVUDINE
     Indication: HIV INFECTION
     Dosage: 1 DF, QD (TAB Q 24 HOURS)
     Route: 065
     Dates: start: 201912, end: 20200504
  2. CRESTOR [Suspect]
     Active Substance: ROSUVASTATIN CALCIUM
     Indication: DYSLIPIDAEMIA
     Dosage: 20 MG, QD
     Route: 065
     Dates: start: 201907, end: 20200409

REACTIONS (9)
  - Hepatic steatosis [Unknown]
  - Aspartate aminotransferase increased [Recovering/Resolving]
  - Nausea [Recovered/Resolved]
  - Decreased appetite [Unknown]
  - Fatigue [Recovered/Resolved]
  - Viral test positive [Unknown]
  - Viral test negative [Unknown]
  - Alanine aminotransferase increased [Recovering/Resolving]
  - Hepatic enzyme abnormal [Unknown]

NARRATIVE: CASE EVENT DATE: 202001
